FAERS Safety Report 7945503-8 (Version None)
Quarter: 2011Q4

REPORT INFORMATION
  Report Type: 
  Country: None (occurrence: None)
  Receive Date: 20111129
  Receipt Date: 20111121
  Transmission Date: 20120403
  Serious: Yes (Other)
  Sender: FDA-Public Use
  Company Number: US-PFIZER INC-2011289017

PATIENT

DRUGS (3)
  1. CARBAMAZEPINE [Concomitant]
  2. GABAPENTIN [Suspect]
  3. VALPROIC ACID [Concomitant]

REACTIONS (1)
  - DRUG ABUSE [None]
